FAERS Safety Report 5987708-1 (Version None)
Quarter: 2008Q4

REPORT INFORMATION
  Report Type: 
  Country: None (occurrence: None)
  Receive Date: 20081209
  Receipt Date: 20081205
  Transmission Date: 20090506
  Serious: No
  Sender: FDA-Public Use
  Company Number: US-B.I. PHARMACEUTICALS,INC./RIDGEFIELD-2008-BP-18209BP

PATIENT
  Sex: Female

DRUGS (1)
  1. SPIRIVA [Suspect]
     Indication: EMPHYSEMA
     Dosage: 18MCG
     Route: 055

REACTIONS (5)
  - BLEPHARITIS [None]
  - EYE IRRITATION [None]
  - EYE PRURITUS [None]
  - LACRIMATION INCREASED [None]
  - PHOTOSENSITIVITY REACTION [None]
